FAERS Safety Report 17349387 (Version 1)
Quarter: 2020Q1

REPORT INFORMATION
  Report Type: Spontaneous
  Country: GB (occurrence: GB)
  Receive Date: 20200130
  Receipt Date: 20200130
  Transmission Date: 20200409
  Serious: Yes (Hospitalization)
  Sender: FDA-Public Use
  Company Number: GB-MYLANLABS-MK-6027537

PATIENT
  Age: 61 Year
  Sex: Female
  Weight: 52 kg

DRUGS (4)
  1. NITRAZEPAM [Concomitant]
     Active Substance: NITRAZEPAM
     Indication: SEDATION
     Dosage: NOCTE
     Route: 048
  2. BETAHISTINE [Concomitant]
     Active Substance: BETAHISTINE
     Indication: VERTIGO
     Dosage: TOTAL DAILY DOSE: 48 MG
     Route: 048
  3. CIPROFLOXACIN. [Suspect]
     Active Substance: CIPROFLOXACIN
     Indication: URINARY TRACT INFECTION
     Dosage: TOTAL DAILY DOSE: 1000 MG
     Route: 048
     Dates: start: 20061012, end: 20061026
  4. MINOCYCLINE [Suspect]
     Active Substance: MINOCYCLINE HYDROCHLORIDE
     Indication: ACNE
     Dosage: 100 MG,QD
     Route: 048
     Dates: start: 20060724, end: 20061026

REACTIONS (1)
  - Cholestasis [Recovering/Resolving]

NARRATIVE: CASE EVENT DATE: 20061020
